FAERS Safety Report 4319285-5 (Version None)
Quarter: 2004Q1

REPORT INFORMATION
  Report Type: 
  Country: None (occurrence: None)
  Receive Date: 20040316
  Receipt Date: 20040302
  Transmission Date: 20041129
  Serious: Yes (Other)
  Sender: FDA-Public Use
  Company Number: JP-JNJFOC-20040300519

PATIENT
  Age: 77 Year
  Sex: Female

DRUGS (6)
  1. ITRACONAZOLE [Suspect]
     Indication: ONYCHOMYCOSIS
     Dosage: 200 MG, IN 1 DAY, ORAL
     Route: 048
  2. NIFEDIPINE [Concomitant]
  3. CANDESARTAN CILEXETIL [Concomitant]
  4. LAFUTINDINE (ALL OTHER THERAPEUTIC PRODUCTS) [Concomitant]
  5. CALCIUM L-ASPARTATE [Concomitant]
  6. ALFACALCIDOL [Concomitant]

REACTIONS (1)
  - CARDIAC FAILURE CONGESTIVE [None]
